FAERS Safety Report 9692741 (Version 2)
Quarter: 2013Q4

REPORT INFORMATION
  Report Type: Report from Study
  Country: US (occurrence: US)
  Receive Date: 20131118
  Receipt Date: 20131205
  Transmission Date: 20140711
  Serious: Yes (Other)
  Sender: FDA-Public Use
  Company Number: US-ROCHE-1301830

PATIENT
  Sex: Male
  Weight: 23.4 kg

DRUGS (2)
  1. NUTROPIN AQ [Suspect]
     Indication: GROWTH HORMONE DEFICIENCY
     Route: 058
     Dates: end: 20131024
  2. NUTROPIN AQ [Suspect]
     Route: 058
     Dates: start: 20131024

REACTIONS (4)
  - Laceration [Unknown]
  - Arthralgia [Unknown]
  - Weight increased [Unknown]
  - Drug dose omission [Unknown]
